FAERS Safety Report 25934240 (Version 2)
Quarter: 2025Q4

REPORT INFORMATION
  Report Type: Report from Study
  Country: US (occurrence: US)
  Receive Date: 20251017
  Receipt Date: 20251110
  Transmission Date: 20260118
  Serious: Yes (Hospitalization, Other)
  Sender: TAKEDA
  Company Number: US-TAKEDA-2021TUS077992

PATIENT
  Age: 67 Year
  Sex: Female

DRUGS (1)
  1. VEDOLIZUMAB [Suspect]
     Active Substance: VEDOLIZUMAB
     Indication: Colitis ulcerative
     Dosage: 300 MILLIGRAM

REACTIONS (7)
  - Oxygen saturation decreased [Unknown]
  - Pneumonia [Unknown]
  - Lower respiratory tract infection [Not Recovered/Not Resolved]
  - Illness [Unknown]
  - Flatulence [Not Recovered/Not Resolved]
  - Sinusitis [Not Recovered/Not Resolved]
  - Pyrexia [Unknown]

NARRATIVE: CASE EVENT DATE: 20210928
